FAERS Safety Report 7444169-3 (Version None)
Quarter: 2011Q2

REPORT INFORMATION
  Report Type: 
  Country: None (occurrence: None)
  Receive Date: 20110429
  Receipt Date: 20101103
  Transmission Date: 20111010
  Serious: Yes (Hospitalization, Other)
  Sender: FDA-Public Use
  Company Number: US-BAYER-201024890NA

PATIENT
  Age: 29 Year
  Sex: Female
  Weight: 69.388 kg

DRUGS (12)
  1. XANAX [Concomitant]
     Indication: ANXIETY
     Dosage: 1 MG, BID
     Route: 048
     Dates: start: 20000101, end: 20090101
  2. ADVAIR DISKUS 100/50 [Concomitant]
     Dosage: 1 PUFF(S), BID
     Dates: start: 20040310, end: 20080101
  3. TESSALON [Concomitant]
     Dosage: UNK
     Dates: start: 20041029, end: 20080304
  4. VICODIN [Concomitant]
     Indication: JOINT INJURY
     Dosage: UNK
     Dates: start: 20000101, end: 20090101
  5. YASMIN [Suspect]
     Indication: PREMENSTRUAL SYNDROME
     Dosage: UNK UNK, QD
     Route: 048
     Dates: start: 20040501, end: 20080604
  6. ALAVERT [Concomitant]
     Dosage: 1 UNK, UNK
     Dates: start: 20050629, end: 20080304
  7. BACTRIM DS [Concomitant]
     Dosage: 1 UNK, UNK
     Dates: start: 20080320
  8. MULTI-VITAMIN [Concomitant]
     Dosage: UNK
     Dates: start: 20040922, end: 20080304
  9. XANAX [Concomitant]
     Indication: DEPRESSION
  10. FIORICET [Concomitant]
     Indication: MIGRAINE
     Dosage: UNK
     Dates: start: 20000101, end: 20090101
  11. SOMA [Concomitant]
     Indication: MUSCLE SPASMS
     Dosage: 350 MG, TID
     Dates: start: 20000101, end: 20090101
  12. YASMIN [Suspect]
     Dosage: UNK
     Dates: start: 20071211

REACTIONS (5)
  - GALLBLADDER CHOLESTEROLOSIS [None]
  - CHOLECYSTITIS CHRONIC [None]
  - ABDOMINAL PAIN UPPER [None]
  - CHOLELITHIASIS [None]
  - DEPRESSION [None]
